FAERS Safety Report 16960061 (Version 2)
Quarter: 2019Q4

REPORT INFORMATION
  Report Type: Spontaneous
  Country: US (occurrence: US)
  Receive Date: 20191025
  Receipt Date: 20191129
  Transmission Date: 20200122
  Serious: Yes (Hospitalization, Other)
  Sender: FDA-Public Use
  Company Number: US-SUNOVION-2019SUN004506

PATIENT
  Sex: Female
  Weight: 129.71 kg

DRUGS (4)
  1. LATUDA [Suspect]
     Active Substance: LURASIDONE HYDROCHLORIDE
     Dosage: 80 MG
     Route: 048
     Dates: start: 20190905
  2. LATUDA [Suspect]
     Active Substance: LURASIDONE HYDROCHLORIDE
     Dosage: 60 MG
     Route: 048
     Dates: start: 20190815
  3. LATUDA [Suspect]
     Active Substance: LURASIDONE HYDROCHLORIDE
     Indication: BIPOLAR I DISORDER
     Dosage: UNK (DECREASED)
     Route: 048
     Dates: start: 20191014, end: 20191016
  4. LATUDA [Suspect]
     Active Substance: LURASIDONE HYDROCHLORIDE
     Dosage: 120 MG
     Route: 048
     Dates: start: 20191007, end: 20191014

REACTIONS (1)
  - Tardive dyskinesia [Recovering/Resolving]
